FAERS Safety Report 5615785-6 (Version None)
Quarter: 2008Q1

REPORT INFORMATION
  Report Type: 
  Country: None (occurrence: None)
  Receive Date: 20080206
  Receipt Date: 20080124
  Transmission Date: 20080703
  Serious: Yes (Other)
  Sender: FDA-Public Use
  Company Number: GB-RANBAXY-2008US-12820

PATIENT

DRUGS (6)
  1. VERAPAMIL [Suspect]
     Indication: ANGINA PECTORIS
     Dosage: 240 MG,
     Route: 048
  2. ADIZEM [Suspect]
     Indication: ANGINA PECTORIS
     Dosage: 120 MG, QD
  3. ISTIN [Concomitant]
     Indication: HYPERTENSION
     Dosage: 5 MG, QD
  4. ASPIRIN [Concomitant]
     Dosage: 75 MG, QD
  5. ISOSORBIDE MONONITRATE [Concomitant]
     Indication: ANGINA PECTORIS
  6. PRAVASTATIN [Concomitant]
     Indication: BLOOD CHOLESTEROL INCREASED
     Dosage: 40 MG, QD

REACTIONS (1)
  - GYNAECOMASTIA [None]
